FAERS Safety Report 5362823-4 (Version None)
Quarter: 2007Q2

REPORT INFORMATION
  Report Type: 
  Country: None (occurrence: None)
  Receive Date: 20070619
  Receipt Date: 20070607
  Transmission Date: 20071010
  Serious: Yes (Other)
  Sender: FDA-Public Use
  Company Number: FR-PFIZER INC-2007048050

PATIENT
  Age: 55 Year
  Sex: Male
  Weight: 106 kg

DRUGS (5)
  1. CHAMPIX [Suspect]
     Route: 048
     Dates: start: 20070308, end: 20070324
  2. SPIRIVA [Concomitant]
  3. SERETIDE [Concomitant]
  4. MIANSERIN HYDROCHLORIDE [Concomitant]
  5. LORAZEPAM [Concomitant]

REACTIONS (4)
  - NIGHTMARE [None]
  - TREMOR [None]
  - URINARY INCONTINENCE [None]
  - WEIGHT INCREASED [None]
